FAERS Safety Report 4518121-1 (Version None)
Quarter: 2004Q4

REPORT INFORMATION
  Report Type: 
  Country: None (occurrence: None)
  Receive Date: 20041130
  Receipt Date: 20041117
  Transmission Date: 20050328
  Serious: Yes (Other)
  Sender: FDA-Public Use
  Company Number: 2004093663

PATIENT
  Sex: Male

DRUGS (2)
  1. ZITHROMAX [Suspect]
     Indication: ILL-DEFINED DISORDER
     Dosage: (500 MG), ORAL
     Route: 048
     Dates: start: 20041103, end: 20041104
  2. ANTIHYPERTENSIVES (ANTIHYPETENSIVES) [Concomitant]

REACTIONS (4)
  - ARRHYTHMIA [None]
  - DIZZINESS [None]
  - HYPOTENSION [None]
  - TACHYCARDIA [None]
